FAERS Safety Report 15017696 (Version 2)
Quarter: 2019Q1

REPORT INFORMATION
  Report Type: Report from Study
  Country: None (occurrence: US)
  Receive Date: 20180615
  Receipt Date: 20190130
  Transmission Date: 20190417
  Serious: Yes (Other)
  Sender: FDA-Public Use
  Company Number: US-ABBVIE-18K-163-2387917-00

PATIENT
  Sex: Female

DRUGS (4)
  1. HUMIRA [Suspect]
     Active Substance: ADALIMUMAB
     Indication: CROHN^S DISEASE
     Route: 058
     Dates: start: 20180116, end: 201803
  2. HUMIRA [Suspect]
     Active Substance: ADALIMUMAB
     Dosage: DAY 15
     Route: 058
     Dates: start: 201806, end: 201806
  3. HUMIRA [Suspect]
     Active Substance: ADALIMUMAB
     Route: 058
     Dates: start: 20180622
  4. HUMIRA [Suspect]
     Active Substance: ADALIMUMAB
     Dosage: DAY 1
     Route: 058
     Dates: start: 201805, end: 201805

REACTIONS (17)
  - Pre-existing condition improved [Recovering/Resolving]
  - Fatigue [Unknown]
  - Abnormal faeces [Unknown]
  - Tinnitus [Unknown]
  - Anal fissure [Unknown]
  - Intestinal resection [Unknown]
  - Haematochezia [Unknown]
  - Flatulence [Unknown]
  - Procedural nausea [Unknown]
  - Headache [Not Recovered/Not Resolved]
  - Sinus disorder [Unknown]
  - Procedural pain [Recovering/Resolving]
  - Diarrhoea [Unknown]
  - Rectal haemorrhage [Unknown]
  - Onychomycosis [Unknown]
  - Therapeutic response unexpected [Unknown]
  - Arthralgia [Unknown]

NARRATIVE: CASE EVENT DATE: 2018
